FAERS Safety Report 7486452-1 (Version None)
Quarter: 2011Q2

REPORT INFORMATION
  Report Type: 
  Country: None (occurrence: None)
  Receive Date: 20110517
  Receipt Date: 20110510
  Transmission Date: 20111010
  Serious: Yes (Life-Threatening, Hospitalization, Other)
  Sender: FDA-Public Use
  Company Number: DE-PFIZER INC-2011095053

PATIENT
  Age: 76 Year
  Sex: Female

DRUGS (5)
  1. AMIODARONE HYDROCHLORIDE [Suspect]
     Indication: ATRIAL FIBRILLATION
     Dosage: 200 MG, 1X/DAY
     Route: 048
     Dates: start: 20101001, end: 20110401
  2. MARCUMAR [Concomitant]
     Indication: ATRIAL FIBRILLATION
     Dosage: UNK
     Dates: start: 20101001
  3. AMIODARONE HYDROCHLORIDE [Suspect]
     Indication: ATRIAL FLUTTER
  4. AMIODARONE HYDROCHLORIDE [Suspect]
     Indication: PROPHYLAXIS
  5. MARCUMAR [Concomitant]
     Indication: ATRIAL FLUTTER

REACTIONS (2)
  - ALVEOLITIS [None]
  - RENAL FAILURE [None]
